FAERS Safety Report 9675384 (Version 1)
Quarter: 2013Q4

REPORT INFORMATION
  Report Type: Spontaneous
  Country: AU (occurrence: None)
  Receive Date: 20131105
  Receipt Date: 20131105
  Transmission Date: 20140711
  Serious: Yes (Other)
  Sender: FDA-Public Use
  Company Number: COR_00025_2013

PATIENT
  Age: 58 Year
  Sex: Female

DRUGS (2)
  1. CARBOPLATIN (CARBOPLATIN) [Suspect]
     Indication: ENDOMETRIAL ADENOCARCINOMA
     Route: 042
  2. PACLITAXEL [Suspect]
     Indication: ENDOMETRIAL ADENOCARCINOMA
     Route: 042

REACTIONS (4)
  - Malaise [None]
  - Pyomyositis [None]
  - Joint effusion [None]
  - Arthritis bacterial [None]
